FAERS Safety Report 4450529-5 (Version None)
Quarter: 2004Q3

REPORT INFORMATION
  Report Type: 
  Country: None (occurrence: None)
  Receive Date: 20040913
  Receipt Date: 20040728
  Transmission Date: 20050211
  Serious: No
  Sender: FDA-Public Use
  Company Number: 2004-BP-06299BP (0)

PATIENT
  Age: 61 Year
  Sex: Male

DRUGS (14)
  1. SPIRIVA [Suspect]
     Indication: CHRONIC OBSTRUCTIVE AIRWAYS DISEASE
     Dosage: 18 MCG (18 MCG), IH
     Route: 055
     Dates: start: 20040724
  2. SIMVASTATIN [Concomitant]
  3. LISINOPRIL [Concomitant]
  4. ALBUTEROL [Concomitant]
  5. AZMACORT [Concomitant]
  6. SEREVENT [Concomitant]
  7. IPRATROPIUM BROMIDE [Concomitant]
  8. XOPENEX [Concomitant]
  9. GLUCOPHAGE [Concomitant]
  10. GLYBURIDE [Concomitant]
  11. SYNTHROID [Concomitant]
  12. RANITIDINE [Concomitant]
  13. OXYCONTIN [Concomitant]
  14. PERCOCET [Concomitant]

REACTIONS (1)
  - DYSPNOEA EXACERBATED [None]
